FAERS Safety Report 6323154-9 (Version None)
Quarter: 2009Q3

REPORT INFORMATION
  Report Type: 
  Country: None (occurrence: None)
  Receive Date: 20090824
  Receipt Date: 20090817
  Transmission Date: 20100115
  Serious: Yes (Other)
  Sender: FDA-Public Use
  Company Number: FR-PFIZER INC-2009242503

PATIENT
  Age: 82 Year

DRUGS (17)
  1. TAHOR [Suspect]
     Indication: HYPERCHOLESTEROLAEMIA
     Dosage: UNK
     Route: 048
     Dates: start: 20090611, end: 20090622
  2. PARACETAMOL [Suspect]
     Indication: PAIN
     Dosage: 1 G, 1X/DAY
     Route: 048
     Dates: start: 20090615, end: 20090622
  3. KEPPRA [Suspect]
     Indication: CONVULSION
     Dosage: UNK
     Route: 048
     Dates: end: 20090622
  4. PLAVIX [Suspect]
     Indication: ARTERIAL THROMBOSIS
     Dosage: UNK
     Route: 048
     Dates: end: 20090622
  5. NICARDIPINE HCL [Concomitant]
     Dosage: 50 MG, 1X/DAY
  6. XATRAL [Concomitant]
  7. DIFFU K [Concomitant]
  8. CITALOPRAM HYDROBROMIDE [Concomitant]
  9. URBANYL [Concomitant]
  10. FUMAFER [Concomitant]
  11. TRAMADOL [Concomitant]
  12. FOZITEC [Concomitant]
     Dosage: 0.5 DF, 1X/DAY
  13. GAVISCON [Concomitant]
  14. KARDEGIC [Concomitant]
  15. NITRODERM [Concomitant]
  16. SODIUM ALGINATE [Suspect]
  17. SODIUM BICARBONATE [Suspect]

REACTIONS (1)
  - THROMBOCYTOPENIA [None]
